FAERS Safety Report 6265541-3 (Version None)
Quarter: 2009Q3

REPORT INFORMATION
  Report Type: 
  Country: None (occurrence: None)
  Receive Date: 20090709
  Receipt Date: 20090709
  Transmission Date: 20100115
  Serious: Yes (Other)
  Sender: FDA-Public Use
  Company Number: None

PATIENT
  Age: 40 Year
  Sex: Female
  Weight: 112.0385 kg

DRUGS (1)
  1. SYNTHROID [Suspect]
     Indication: HYPERTHYROIDISM
     Dosage: 112MCG  ONCE A DAY BUCCAL
     Route: 002
     Dates: start: 20090602, end: 20090702

REACTIONS (6)
  - BRONCHITIS [None]
  - BURNING SENSATION [None]
  - HYPERSENSITIVITY [None]
  - PRODUCT SUBSTITUTION ISSUE [None]
  - REACTION TO DRUG EXCIPIENTS [None]
  - THROAT TIGHTNESS [None]
